FAERS Safety Report 6437815-4 (Version None)
Quarter: 2009Q4

REPORT INFORMATION
  Report Type: 
  Country: None (occurrence: None)
  Receive Date: 20091112
  Receipt Date: 20091012
  Transmission Date: 20100525
  Serious: No
  Sender: FDA-Public Use
  Company Number: US-BAYER-200936051NA

PATIENT
  Age: 65 Year
  Sex: Male

DRUGS (3)
  1. CIPRO [Suspect]
     Indication: PROSTATITIS
     Dates: start: 20080201
  2. CIPRO [Suspect]
     Dates: start: 20081201
  3. CIPRO [Suspect]
     Dates: start: 20090101

REACTIONS (2)
  - JOINT SWELLING [None]
  - LIMB DISCOMFORT [None]
